FAERS Safety Report 5591237-7 (Version None)
Quarter: 2007Q4

REPORT INFORMATION
  Report Type: 
  Country: None (occurrence: None)
  Receive Date: 20071212
  Receipt Date: 20070815
  Transmission Date: 20080405
  Serious: Yes (Other)
  Sender: FDA-Public Use
  Company Number: USA-2007-0028807

PATIENT
  Sex: Male

DRUGS (6)
  1. OXYCONTIN [Suspect]
     Indication: PAIN
     Dosage: 20 MG, BID, ORAL
     Route: 048
     Dates: start: 19930101
  2. VICODIN [Concomitant]
  3. LOVASTATIN [Concomitant]
  4. DRUG USED IN DIABETES [Concomitant]
  5. DRUGS USED FOR DEPRESSION [Concomitant]
  6. VITAMIN D [Concomitant]

REACTIONS (7)
  - AGGRESSION [None]
  - DEPRESSION [None]
  - DRUG DEPENDENCE [None]
  - FEELING ABNORMAL [None]
  - HOMICIDAL IDEATION [None]
  - IMPAIRED DRIVING ABILITY [None]
  - WITHDRAWAL SYNDROME [None]
